FAERS Safety Report 19059490 (Version 3)
Quarter: 2021Q2

REPORT INFORMATION
  Report Type: Spontaneous
  Country: PL (occurrence: PL)
  Receive Date: 20210325
  Receipt Date: 20210413
  Transmission Date: 20210717
  Serious: Yes (Hospitalization, Other)
  Sender: FDA-Public Use
  Company Number: PL-PFIZER INC-2021292703

PATIENT
  Age: 57 Year
  Sex: Male
  Weight: 86 kg

DRUGS (11)
  1. RIVAROXABAN [Suspect]
     Active Substance: RIVAROXABAN
     Indication: DEEP VEIN THROMBOSIS
     Dosage: 1 DF
     Route: 065
  2. PANTOPRAZOLE [Suspect]
     Active Substance: PANTOPRAZOLE
     Dosage: 1 DF, UNKNOWN
  3. CANDESARTAN. [Suspect]
     Active Substance: CANDESARTAN
     Dosage: 1 DF, UNKNOWN
     Route: 065
  4. IVABRADINE [Suspect]
     Active Substance: IVABRADINE
     Dosage: 1 DF, BID
  5. BISOPROLOL [Suspect]
     Active Substance: BISOPROLOL
     Dosage: 1 DF, UNKNOWN
     Route: 065
  6. ALLOPURINOL. [Suspect]
     Active Substance: ALLOPURINOL
     Dosage: 1 DF, UNKNOWN
     Route: 065
  7. IVABRADINE [Suspect]
     Active Substance: IVABRADINE
     Dosage: 2 DF, QD
     Route: 065
  8. SACUBITRIL VALSARTAN SODIUM HYDRATE [Suspect]
     Active Substance: SACUBITRIL\VALSARTAN
     Dosage: 1 DF, BID
  9. EPLERENONE. [Suspect]
     Active Substance: EPLERENONE
     Dosage: 1 DF, UNKNOWN
     Route: 065
  10. AMIODARONE [Suspect]
     Active Substance: AMIODARONE
     Dosage: 1 DF, UNKNOWN
     Route: 065
  11. SACUBITRIL VALSARTAN SODIUM HYDRATE [Suspect]
     Active Substance: SACUBITRIL\VALSARTAN
     Dosage: 2 DF, QD
     Route: 065

REACTIONS (13)
  - Dyspnoea exertional [Unknown]
  - Tricuspid valve incompetence [Unknown]
  - Mitral valve incompetence [Unknown]
  - Ventricular enlargement [Unknown]
  - Ventricular arrhythmia [Unknown]
  - Pulmonary oedema [Unknown]
  - Dyspnoea at rest [Unknown]
  - Defect conduction intraventricular [Unknown]
  - Supraventricular extrasystoles [Unknown]
  - Ventricular dysfunction [Unknown]
  - Hypotension [Unknown]
  - N-terminal prohormone brain natriuretic peptide increased [Recovering/Resolving]
  - Asthenia [Unknown]
